FAERS Safety Report 11844494 (Version 1)
Quarter: 2015Q4

REPORT INFORMATION
  Report Type: Spontaneous
  Country: US (occurrence: None)
  Receive Date: 20151216
  Receipt Date: 20151216
  Transmission Date: 20160305
  Serious: Yes (Hospitalization)
  Sender: FDA-Public Use
  Company Number: None

PATIENT
  Age: 42 Year
  Sex: Male
  Weight: 77.1 kg

DRUGS (2)
  1. QUETIAPINE 200MG SUN PHARMACEUTICALS [Suspect]
     Active Substance: QUETIAPINE
     Indication: AFFECT LABILITY
     Dosage: 200MG + 225MG QAM + HS PO
     Route: 048
     Dates: start: 20150902
  2. DIVALPROEX 500MG SUN PHARMACEUTICALS [Suspect]
     Active Substance: DIVALPROEX SODIUM
     Indication: PSYCHOTIC DISORDER
     Dosage: STARTED 9/4 + BEING TITRATED UP
     Route: 048
     Dates: start: 20150904

REACTIONS (5)
  - Lethargy [None]
  - Urinary retention [None]
  - Pyrexia [None]
  - Unresponsive to stimuli [None]
  - Muscle rigidity [None]

NARRATIVE: CASE EVENT DATE: 20151006
